FAERS Safety Report 7682126-2 (Version None)
Quarter: 2011Q3

REPORT INFORMATION
  Report Type: 
  Country: None (occurrence: None)
  Receive Date: 20110810
  Receipt Date: 20110802
  Transmission Date: 20111222
  Serious: Yes (Other)
  Sender: FDA-Public Use
  Company Number: 1000022676

PATIENT
  Age: 74 Year
  Sex: Female
  Weight: 69 kg

DRUGS (15)
  1. PARACETAMOL WITH CODEINE (PARACETAMOL, CODEINE) (PARACETAMOL, CODEINE) [Concomitant]
  2. BUMETANIDE (BUMETANIDE) (BUMETANIDE) [Concomitant]
  3. LANOXIN (DIGOXIN) (DIGOXIN) [Concomitant]
  4. ROFLUMILAST (ROFLUMILAST) (TABLETS) [Suspect]
     Indication: CHRONIC OBSTRUCTIVE PULMONARY DISEASE
     Dosage: 500 MCG (500 MCG, 1 IN 1 D), ORAL
     Route: 048
     Dates: start: 20110501, end: 20110501
  5. PRAMIPEXOLE (PRAMIPEXOLE) (PRAMIPEXOLE) [Concomitant]
  6. OMEPRAZOLE [Concomitant]
  7. SPIRIVA (TIOTROPIUM BROMIDE) (TIOTROPIUM BROMIDE) [Concomitant]
  8. MAGNESIUM (MAGNESIUM) (MAGNESIUM) [Concomitant]
  9. SERETIDE (SALMETEROL, FLUTICASONE) (SALMETEROL FLUTICASONE) [Concomitant]
  10. VERAPAMIL [Concomitant]
  11. ROFLUMILAST (ROFLUMILAST) (TABLETS) [Suspect]
     Indication: CHRONIC OBSTRUCTIVE PULMONARY DISEASE
     Dosage: 500 MCG (500 MCG, 1 IN 1 D), ORAL
     Route: 048
     Dates: start: 20110225, end: 20110301
  12. VENTOLIN [Concomitant]
  13. CALCICHEW (CALCIUM CARBONATE) (CALCIUM CARBONATE) [Concomitant]
  14. ACTONEL (RISEDRONATE SODIUM) (RISEDRONATE SODIUM) [Concomitant]
  15. FENPROCOUMON (PHENPROCOUMON) (PHENPROCOUMON) [Concomitant]

REACTIONS (8)
  - WEIGHT DECREASED [None]
  - DECREASED APPETITE [None]
  - DEPRESSION [None]
  - ANHEDONIA [None]
  - DEPRESSED MOOD [None]
  - DYSGEUSIA [None]
  - ABDOMINAL PAIN [None]
  - VOMITING [None]
